FAERS Safety Report 7861762 (Version 4)
Quarter: 2013Q2

REPORT INFORMATION
  Report Type: Spontaneous
  Country: US (occurrence: US)
  Receive Date: 20110318
  Receipt Date: 20130402
  Transmission Date: 20140414
  Serious: Yes (Hospitalization)
  Sender: FDA-Public Use
  Company Number: US-BAYER-2011-023922

PATIENT
  Age: 15 Year
  Sex: Female
  Weight: 105 kg

DRUGS (3)
  1. YAZ [Suspect]
     Indication: PREMENSTRUAL SYNDROME
     Dosage: UNK
     Route: 048
     Dates: start: 201005, end: 201007
  2. YAZ [Suspect]
     Indication: POLYCYSTIC OVARIES
  3. MONTELUKAST SODIUM [Concomitant]
     Dosage: UNK
     Dates: start: 1997

REACTIONS (4)
  - Deep vein thrombosis [None]
  - Injury [None]
  - Pain [None]
  - General physical health deterioration [None]
